FAERS Safety Report 7425245-8 (Version None)
Quarter: 2011Q2

REPORT INFORMATION
  Report Type: 
  Country: None (occurrence: None)
  Receive Date: 20110412
  Receipt Date: 20110329
  Transmission Date: 20111010
  Serious: Yes (Death, Life-Threatening)
  Sender: FDA-Public Use
  Company Number: 2010004133

PATIENT
  Age: 73 Year
  Sex: Male
  Weight: 57.2 kg

DRUGS (10)
  1. ERLOTINIB (ERLOTINIB) (TABLET) (ERLOTINIB) [Suspect]
     Indication: LUNG ADENOCARCINOMA
     Dosage: (150 MG,QD),ORAL
     Route: 048
     Dates: start: 20081021, end: 20081120
  2. MAGNESIUM OXIDE (MAGNESIUM OXIDE) [Concomitant]
  3. RINDERON-VG (VALISONE-G) [Concomitant]
  4. CALONAL (PARACETANOL) [Concomitant]
  5. NOVAMIN (PROCHLORPERAZINE) [Concomitant]
  6. DIGOXIN [Concomitant]
  7. PREDNISOLONE [Concomitant]
  8. MICARDIS [Concomitant]
  9. LAC-B [Concomitant]
  10. OXYCONTIN [Concomitant]

REACTIONS (6)
  - CARDIAC FAILURE [None]
  - MYOCARDIAL INFARCTION [None]
  - CORONARY ARTERY STENOSIS [None]
  - PAIN [None]
  - RASH [None]
  - ALTERED STATE OF CONSCIOUSNESS [None]
